FAERS Safety Report 9580438 (Version 2)
Quarter: 2013Q4

REPORT INFORMATION
  Report Type: Report from Study
  Country: BE (occurrence: BE)
  Receive Date: 20131002
  Receipt Date: 20131002
  Transmission Date: 20140711
  Serious: Yes (Hospitalization)
  Sender: FDA-Public Use
  Company Number: BE-ABBVIE-13P-013-1102399-00

PATIENT
  Age: 52 Year
  Sex: Male

DRUGS (5)
  1. HUMIRA [Suspect]
     Indication: PSORIASIS
     Dates: start: 20110919, end: 20111003
  2. HUMIRA [Suspect]
     Dates: start: 20111003, end: 201207
  3. HUMIRA [Suspect]
     Dates: start: 201306
  4. ROSUVASTATINE [Concomitant]
     Dates: start: 201207
  5. PERINDOPRIL [Concomitant]
     Dates: start: 201207

REACTIONS (4)
  - Multiple fractures [Recovering/Resolving]
  - Road traffic accident [Unknown]
  - Wound [Recovering/Resolving]
  - Psoriasis [Unknown]
